FAERS Safety Report 9200424 (Version 1)
Quarter: 2013Q1

REPORT INFORMATION
  Report Type: Spontaneous
  Country: GB (occurrence: GB)
  Receive Date: 20130329
  Receipt Date: 20130329
  Transmission Date: 20140127
  Serious: Yes (Other)
  Sender: FDA-Public Use
  Company Number: GB-ASTRAZENECA-2013SE19003

PATIENT
  Age: 42 Year
  Sex: Male

DRUGS (7)
  1. OMEPRAZOLE [Suspect]
     Route: 048
     Dates: end: 1995
  2. OMEPRAZOLE [Suspect]
     Route: 048
  3. ASACOL [Concomitant]
  4. AZATHIOPRINE [Concomitant]
  5. BACLOFEN [Concomitant]
  6. TEGRETOL [Concomitant]
  7. TELFAST [Concomitant]

REACTIONS (10)
  - Condition aggravated [Recovering/Resolving]
  - Eye pain [Recovered/Resolved with Sequelae]
  - Ocular hyperaemia [Recovered/Resolved with Sequelae]
  - Dysphagia [Recovered/Resolved]
  - Colitis ulcerative [Recovering/Resolving]
  - Hypersensitivity [Recovering/Resolving]
  - Diarrhoea [Recovered/Resolved]
  - Nausea [Recovered/Resolved]
  - Vomiting [Recovered/Resolved]
  - Wheezing [Recovered/Resolved]
